FAERS Safety Report 11080213 (Version 1)
Quarter: 2015Q2

REPORT INFORMATION
  Report Type: Spontaneous
  Country: US (occurrence: US)
  Receive Date: 20150430
  Receipt Date: 20150430
  Transmission Date: 20150821
  Serious: No
  Sender: FDA-Public Use
  Company Number: US-BAYER-2015-178725

PATIENT

DRUGS (1)
  1. CLARITIN [Suspect]
     Active Substance: LORATADINE

REACTIONS (4)
  - Nasal oedema [None]
  - Therapeutic response unexpected [Unknown]
  - Nasal dryness [Unknown]
  - Epistaxis [Unknown]
